FAERS Safety Report 9709660 (Version 1)
Quarter: 2013Q4

REPORT INFORMATION
  Report Type: Report from Study
  Country: CL (occurrence: CL)
  Receive Date: 20131126
  Receipt Date: 20131126
  Transmission Date: 20140711
  Serious: Yes (Other)
  Sender: FDA-Public Use
  Company Number: PHHY2013CL135495

PATIENT
  Sex: Male

DRUGS (1)
  1. TAREG [Suspect]
     Dosage: UNK UKN, UNK
     Route: 048

REACTIONS (1)
  - Deafness [Not Recovered/Not Resolved]
